FAERS Safety Report 15621228 (Version 2)
Quarter: 2018Q4

REPORT INFORMATION
  Report Type: Report from Study
  Country: US (occurrence: US)
  Receive Date: 20181115
  Receipt Date: 20181116
  Transmission Date: 20190205
  Serious: Yes (Death, Other)
  Sender: FDA-Public Use
  Company Number: PHHY2018US152771

PATIENT
  Sex: Male

DRUGS (1)
  1. KYMRIAH [Suspect]
     Active Substance: TISAGENLECLEUCEL
     Indication: CHRONIC LYMPHOCYTIC LEUKAEMIA REFRACTORY
     Dosage: UNK
     Route: 042
     Dates: start: 20181022

REACTIONS (6)
  - Disseminated intravascular coagulation [Fatal]
  - Lung infection pseudomonal [Unknown]
  - Cytokine release syndrome [Fatal]
  - Paralysis [Not Recovered/Not Resolved]
  - Multiple organ dysfunction syndrome [Fatal]
  - Cerebral haemorrhage [Unknown]
